FAERS Safety Report 7805189-X (Version None)
Quarter: 2011Q4

REPORT INFORMATION
  Report Type: 
  Country: None (occurrence: None)
  Receive Date: 20111010
  Receipt Date: 20111004
  Transmission Date: 20120403
  Serious: Yes (Death)
  Sender: FDA-Public Use
  Company Number: IE-BAXTER-2011BH031293

PATIENT
  Age: 70 Year
  Sex: Male

DRUGS (1)
  1. HEPARIN [Suspect]
     Indication: COAGULOPATHY
     Route: 042

REACTIONS (1)
  - HAEMATEMESIS [None]
